FAERS Safety Report 10016427 (Version 1)
Quarter: 2014Q1

REPORT INFORMATION
  Report Type: Spontaneous
  Country: GB (occurrence: GB)
  Receive Date: 20140317
  Receipt Date: 20140317
  Transmission Date: 20141002
  Serious: Yes (Hospitalization)
  Sender: FDA-Public Use
  Company Number: GB-ACTAVIS-2014-04599

PATIENT
  Age: 21 Year
  Sex: Female
  Weight: 84 kg

DRUGS (12)
  1. CITALOPRAM (UNKNOWN) [Suspect]
     Indication: PRODUCT USED FOR UNKNOWN INDICATION
     Dosage: 20 MG, UNKNOWN
     Route: 065
     Dates: start: 201302
  2. QUETIAPINE (UNKNOWN) [Suspect]
     Indication: PRODUCT USED FOR UNKNOWN INDICATION
     Dosage: UNK
     Route: 065
     Dates: start: 201311, end: 201401
  3. RISPERIDONE (UNKNOWN) [Suspect]
     Indication: AGITATION
     Dosage: 0.5 MG, BID
     Route: 065
  4. STRATTERA [Suspect]
     Indication: PRODUCT USED FOR UNKNOWN INDICATION
     Dosage: 25 MG, UNKNOWN
     Route: 065
     Dates: start: 201311, end: 201312
  5. STRATTERA [Suspect]
     Dosage: 40 MG, UNKNOWN
     Route: 065
     Dates: start: 201310, end: 201310
  6. STRATTERA [Suspect]
     Dosage: 60 MG, UNKNOWN
     Route: 065
     Dates: start: 201308
  7. STRATTERA [Suspect]
     Dosage: 40 MG, UNKNOWN
     Route: 065
     Dates: start: 201305
  8. STRATTERA [Suspect]
     Dosage: 25 MG, UNKNOWN
     Route: 065
     Dates: start: 201301
  9. STRATTERA [Suspect]
     Dosage: 18 MG, UNKNOWN
     Route: 065
     Dates: start: 201211
  10. STRATTERA [Suspect]
     Dosage: 10 MG, UNKNOWN
     Route: 065
     Dates: start: 201210
  11. CIRCADIN [Concomitant]
     Indication: PRODUCT USED FOR UNKNOWN INDICATION
     Dosage: 8 MG, UNKNOWN
     Route: 065
     Dates: start: 201306
  12. SERTRALINE [Concomitant]
     Indication: AGITATION
     Dosage: 50 MG, UNKNOWN
     Route: 065
     Dates: start: 201310

REACTIONS (8)
  - Bipolar I disorder [Not Recovered/Not Resolved]
  - Depression [Not Recovered/Not Resolved]
  - Merycism [Not Recovered/Not Resolved]
  - Major depression [Not Recovered/Not Resolved]
  - Attention deficit/hyperactivity disorder [Not Recovered/Not Resolved]
  - Somnolence [Not Recovered/Not Resolved]
  - Sedation [Not Recovered/Not Resolved]
  - Agitation [Not Recovered/Not Resolved]
